FAERS Safety Report 15941632 (Version 1)
Quarter: 2019Q1

REPORT INFORMATION
  Report Type: Spontaneous
  Country: US (occurrence: US)
  Receive Date: 20190209
  Receipt Date: 20190209
  Transmission Date: 20190417
  Serious: Yes (Disabling)
  Sender: FDA-Public Use
  Company Number: None

PATIENT
  Age: 47 Year
  Sex: Female
  Weight: 56.25 kg

DRUGS (1)
  1. LUPRON DEPOT [Suspect]
     Active Substance: LEUPROLIDE ACETATE
     Indication: ENDOMETRIOSIS
     Dosage: ?          QUANTITY:1 INJECTION(S);OTHER FREQUENCY:3 MONTHS;?
     Route: 030
     Dates: start: 20160901, end: 20170801

REACTIONS (6)
  - Fatigue [None]
  - Weight decreased [None]
  - Urticaria [None]
  - Blood bilirubin increased [None]
  - Pruritus [None]
  - Jaundice [None]

NARRATIVE: CASE EVENT DATE: 20170801
